FAERS Safety Report 6193762-7 (Version None)
Quarter: 2009Q2

REPORT INFORMATION
  Report Type: 
  Country: None (occurrence: None)
  Receive Date: 20090518
  Receipt Date: 20090518
  Transmission Date: 20091009
  Serious: Yes (Hospitalization)
  Sender: FDA-Public Use
  Company Number: DE-PFIZER INC-2009183846

PATIENT
  Age: 72 Year

DRUGS (7)
  1. AZULFIDINE EN-TABS [Interacting]
     Indication: RHEUMATOID ARTHRITIS
     Dosage: 500 MG, 2X/DAY
     Route: 048
     Dates: start: 19900101
  2. FALITHROM [Suspect]
     Indication: PULMONARY EMBOLISM
     Dosage: 3 MG, ALTERNATE DAY
     Route: 048
     Dates: start: 20080210, end: 20081207
  3. TRAMADOL HYDROCHLORIDE AND ACETAMINOPHEN [Interacting]
     Indication: PAIN
     Dosage: 37.5 MG, 1X/DAY
     Route: 048
     Dates: start: 20080701, end: 20081206
  4. AZATHIOPRINE [Concomitant]
     Indication: RHEUMATOID ARTHRITIS
     Dosage: 50 MG, 1X/DAY
     Route: 048
     Dates: start: 19900101
  5. BELOC-ZOK MITE [Concomitant]
     Indication: HYPERTENSION
     Dosage: 47.5 MG, 1X/DAY
     Route: 048
     Dates: start: 20080701
  6. LEVOTHYROXINE SODIUM [Concomitant]
     Indication: HYPOTHYROIDISM
     Dosage: 150 UG, 1X/DAY
     Route: 048
     Dates: start: 19940101
  7. SIMVASTATIN [Concomitant]
     Indication: HYPERLIPIDAEMIA
     Dosage: 30 MG, 1X/DAY
     Route: 048
     Dates: start: 20071201

REACTIONS (2)
  - DRUG INTERACTION [None]
  - GASTROINTESTINAL HAEMORRHAGE [None]
